FAERS Safety Report 9080289 (Version 1)
Quarter: 2013Q1

REPORT INFORMATION
  Report Type: Report from Study
  Country: US (occurrence: US)
  Receive Date: 20130130
  Receipt Date: 20130130
  Transmission Date: 20140127
  Serious: No
  Sender: FDA-Public Use
  Company Number: US-ABBOTT-12P-163-0942096-00

PATIENT
  Sex: Male

DRUGS (6)
  1. HUMIRA 40 MG/0.8 ML PEN [Suspect]
     Indication: ANKYLOSING SPONDYLITIS
     Dosage: INTERRUPTED
     Route: 058
     Dates: start: 200808, end: 201112
  2. HUMIRA 40 MG/0.8 ML PEN [Suspect]
     Route: 058
     Dates: start: 20120125
  3. ISONIAZID [Concomitant]
     Indication: PRODUCT USED FOR UNKNOWN INDICATION
     Dosage: 300 MG 30 DS
     Dates: start: 20110812
  4. RIFAMPIN [Concomitant]
     Indication: PRODUCT USED FOR UNKNOWN INDICATION
     Dosage: 300 MG-30 DS
     Dates: start: 20111109
  5. PYRAZINAMIDE [Concomitant]
     Indication: PRODUCT USED FOR UNKNOWN INDICATION
     Dosage: 500 MG- 30 DS
     Dates: start: 20120118
  6. ETHAMBUTOL HCL [Concomitant]
     Indication: PRODUCT USED FOR UNKNOWN INDICATION
     Dosage: 400 MG - 30 DXS 2 REFILLS
     Dates: start: 20120313

REACTIONS (5)
  - Mycobacterium tuberculosis complex test positive [Recovered/Resolved]
  - Myalgia [Unknown]
  - Arthralgia [Unknown]
  - Tuberculosis [Unknown]
  - False positive tuberculosis test [Unknown]
